FAERS Safety Report 16822480 (Version 1)
Quarter: 2019Q3

REPORT INFORMATION
  Report Type: Spontaneous
  Country: US (occurrence: US)
  Receive Date: 20190918
  Receipt Date: 20190918
  Transmission Date: 20191005
  Serious: No
  Sender: FDA-Public Use
  Company Number: US-GILEAD-2019-0428242

PATIENT
  Age: 46 Year
  Sex: Female

DRUGS (8)
  1. FLUTICASONE PROPIONATE. [Concomitant]
     Active Substance: FLUTICASONE PROPIONATE
     Dosage: UNKNOWN
  2. REMERON [Concomitant]
     Active Substance: MIRTAZAPINE
  3. AMITRIPTYLINE HCL [Concomitant]
     Active Substance: AMITRIPTYLINE
     Dosage: UNKNOWN
  4. HYDROXYZINE PAMOATE. [Concomitant]
     Active Substance: HYDROXYZINE PAMOATE
     Dosage: UNKNOWN
  5. PROVENTIL [SALBUTAMOL SULFATE] [Concomitant]
  6. HARVONI [Suspect]
     Active Substance: LEDIPASVIR\SOFOSBUVIR
     Indication: CHRONIC HEPATITIS C
     Dosage: 1 DOSAGE FORM, QD
     Route: 048
     Dates: start: 20190828
  7. PRAZOSIN HYDROCHLORIDE. [Concomitant]
     Active Substance: PRAZOSIN HYDROCHLORIDE
  8. LEVOCETIRIZINE DIHYDROCHLORIDE. [Concomitant]
     Active Substance: LEVOCETIRIZINE DIHYDROCHLORIDE
     Dosage: UNKNOWN

REACTIONS (2)
  - Fatigue [Recovering/Resolving]
  - Nausea [Recovering/Resolving]
